FAERS Safety Report 12665562 (Version 1)
Quarter: 2016Q3

REPORT INFORMATION
  Report Type: Spontaneous
  Country: US (occurrence: US)
  Receive Date: 20160818
  Receipt Date: 20160818
  Transmission Date: 20161109
  Serious: Yes (Other)
  Sender: FDA-Public Use
  Company Number: US-GLAXOSMITHKLINE-CHPA2016US003091

PATIENT
  Age: 71 Year
  Sex: Female

DRUGS (1)
  1. TRANSDERM SCOP [Suspect]
     Active Substance: SCOPOLAMINE
     Indication: MOTION SICKNESS
     Dosage: 1 UNK, UNK
     Route: 062
     Dates: start: 20160227, end: 20160229

REACTIONS (4)
  - Mydriasis [Recovered/Resolved]
  - Hallucination, visual [Recovered/Resolved]
  - Incorrect drug administration duration [Unknown]
  - Disorientation [Recovered/Resolved]

NARRATIVE: CASE EVENT DATE: 20160227
